FAERS Safety Report 7738336-9 (Version None)
Quarter: 2011Q3

REPORT INFORMATION
  Report Type: 
  Country: None (occurrence: None)
  Receive Date: 20110908
  Receipt Date: 20110902
  Transmission Date: 20111222
  Serious: Yes (Other)
  Sender: FDA-Public Use
  Company Number: PHHY2011GB52481

PATIENT
  Age: 15 Month
  Sex: Male
  Weight: 10.4 kg

DRUGS (14)
  1. CEFOTAXIME [Interacting]
     Indication: ENDOCARDITIS
     Dosage: 500 MG, UNK
     Route: 042
     Dates: start: 20110502, end: 20110526
  2. VANCOMYCIN [Interacting]
     Indication: ENDOCARDITIS
     Dosage: 550 MG, UNK
     Route: 042
     Dates: start: 20110502, end: 20110526
  3. NYSTATIN [Concomitant]
     Indication: CANDIDIASIS
     Dosage: 100000 IU, UNK
     Route: 048
     Dates: start: 20110524, end: 20110531
  4. LACTULOSE [Concomitant]
     Indication: CONSTIPATION
     Dosage: 5 ML, BID
     Dates: start: 20110418, end: 20110421
  5. CEFUROXIME [Concomitant]
     Indication: POSTOPERATIVE CARE
     Dosage: 300 MG, TID
     Dates: start: 20110415
  6. MILRINONE [Concomitant]
     Indication: POSTOPERATIVE CARE
     Dates: start: 20110415
  7. ASPIRIN [Concomitant]
     Indication: ANTIPLATELET THERAPY
     Dosage: 45 MG, UNK
     Route: 048
     Dates: start: 20110415
  8. ACETAMINOPHEN [Concomitant]
     Indication: PYREXIA
     Dosage: 180 MG, PRN
  9. SPIRONOLACTONE [Concomitant]
     Indication: DIABETES MELLITUS
     Dosage: 5 MG, UNK
     Route: 048
     Dates: start: 20110305, end: 20110528
  10. RIFAMPICIN [Suspect]
     Indication: ENDOCARDITIS
     Dosage: 68 MG, UNK
     Route: 048
     Dates: start: 20110502, end: 20110526
  11. GENTAMICIN [Concomitant]
     Indication: ENDOCARDITIS
     Dosage: 25 MG, TID
     Dates: start: 20110502
  12. FUROSEMIDE [Interacting]
     Dosage: 5 MG, UNK
     Route: 048
     Dates: start: 20100305, end: 20110528
  13. CODEINE SULFATE [Concomitant]
     Indication: PAIN
     Dosage: 10 MG, UNK
  14. HEPARIN [Concomitant]
     Indication: POSTOPERATIVE CARE

REACTIONS (3)
  - RASH ERYTHEMATOUS [None]
  - PAPULE [None]
  - DRUG INTERACTION [None]
